FAERS Safety Report 20372235 (Version 3)
Quarter: 2022Q2

REPORT INFORMATION
  Report Type: Report from Study
  Country: US (occurrence: US)
  Receive Date: 20220124
  Receipt Date: 20220609
  Transmission Date: 20220721
  Serious: No
  Sender: FDA-Public Use
  Company Number: US-BIOVITRUM-2022US00736

PATIENT
  Sex: Female

DRUGS (1)
  1. KINERET [Suspect]
     Active Substance: ANAKINRA
     Indication: Product used for unknown indication
     Route: 058
     Dates: start: 20170925

REACTIONS (6)
  - Pain [Unknown]
  - Condition aggravated [Unknown]
  - Inflammation [Unknown]
  - Movement disorder [Unknown]
  - Discomfort [Unknown]
  - Loss of personal independence in daily activities [Unknown]
